FAERS Safety Report 20802442 (Version 1)
Quarter: 2022Q2

REPORT INFORMATION
  Report Type: Spontaneous
  Country: US (occurrence: None)
  Receive Date: 20220509
  Receipt Date: 20220509
  Transmission Date: 20220721
  Serious: No
  Sender: FDA-Public Use
  Company Number: None

PATIENT
  Age: 61 Year
  Sex: Male

DRUGS (1)
  1. ASPIRIN [Suspect]
     Active Substance: ASPIRIN
     Indication: Cerebrovascular accident prophylaxis
     Dosage: FREQUENCY : DAILY;?
     Route: 048
     Dates: start: 20220222, end: 20220227

REACTIONS (4)
  - Haematemesis [None]
  - Oesophagitis [None]
  - Upper gastrointestinal haemorrhage [None]
  - Duodenal bulb deformity [None]

NARRATIVE: CASE EVENT DATE: 20220227
